FAERS Safety Report 7351545-6 (Version None)
Quarter: 2011Q1

REPORT INFORMATION
  Report Type: 
  Country: None (occurrence: None)
  Receive Date: 20110314
  Receipt Date: 20110304
  Transmission Date: 20110831
  Serious: Yes (Other)
  Sender: FDA-Public Use
  Company Number: US-AMGEN-USASP2011012472

PATIENT
  Age: 55 Year
  Sex: Female

DRUGS (1)
  1. ENBREL [Suspect]
     Indication: RHEUMATOID ARTHRITIS
     Dosage: 50 MG, QWK
     Dates: start: 20110201

REACTIONS (6)
  - SWELLING FACE [None]
  - BLISTER [None]
  - ARTHRALGIA [None]
  - PRURITUS [None]
  - ERYTHEMA [None]
  - JOINT SWELLING [None]
